FAERS Safety Report 18463948 (Version 1)
Quarter: 2020Q4

REPORT INFORMATION
  Report Type: Spontaneous
  Country: US (occurrence: US)
  Receive Date: 20201104
  Receipt Date: 20201104
  Transmission Date: 20210114
  Serious: No
  Sender: FDA-Public Use
  Company Number: NVSC2020US293446

PATIENT
  Sex: Female

DRUGS (1)
  1. PROMACTA [Suspect]
     Active Substance: ELTROMBOPAG OLAMINE
     Indication: IMMUNE THROMBOCYTOPENIA
     Dosage: 25 MG, QD(1 TABLET DAILY FOR 2 DAYS, THEN 2 TABLETS ON DAY 3, THEN REPEAT CYCLE)
     Route: 048
     Dates: start: 20200626

REACTIONS (1)
  - Gastrointestinal disorder [Unknown]
